FAERS Safety Report 17098464 (Version 1)
Quarter: 2019Q4

REPORT INFORMATION
  Report Type: Spontaneous
  Country: US (occurrence: US)
  Receive Date: 20191202
  Receipt Date: 20191202
  Transmission Date: 20200122
  Serious: No
  Sender: FDA-Public Use
  Company Number: US-HORIZON-DUE-0638-2019

PATIENT
  Age: 63 Year
  Sex: Male

DRUGS (1)
  1. DUEXIS [Suspect]
     Active Substance: FAMOTIDINE\IBUPROFEN
     Indication: SPINAL STENOSIS
     Dosage: 2-3 TIMES A DAY
     Dates: end: 201910

REACTIONS (2)
  - Off label use [Unknown]
  - Drug ineffective [Unknown]
